FAERS Safety Report 7332048-1 (Version None)
Quarter: 2011Q1

REPORT INFORMATION
  Report Type: 
  Country: None (occurrence: None)
  Receive Date: 20110304
  Receipt Date: 20110222
  Transmission Date: 20110831
  Serious: Yes (Death, Hospitalization)
  Sender: FDA-Public Use
  Company Number: MA-GENZYME-POMP-1001256

PATIENT
  Sex: Female
  Weight: 6 kg

DRUGS (2)
  1. CAPTOPRIL [Concomitant]
     Indication: CARDIOMYOPATHY
     Dosage: .5 OTHER, QD
     Route: 065
  2. MYOZYME [Suspect]
     Indication: GLYCOGEN STORAGE DISEASE TYPE II
     Dosage: 20 MG/KG, Q2W
     Route: 042
     Dates: start: 20101028

REACTIONS (3)
  - OEDEMA [None]
  - CARDIAC FAILURE [None]
  - MUSCLE DISORDER [None]
